FAERS Safety Report 7389182-X (Version None)
Quarter: 2011Q2

REPORT INFORMATION
  Report Type: 
  Country: None (occurrence: None)
  Receive Date: 20110401
  Receipt Date: 20110325
  Transmission Date: 20111010
  Serious: Yes (Death, Hospitalization)
  Sender: FDA-Public Use
  Company Number: US-SANOFI-AVENTIS-2011SA018871

PATIENT
  Age: 57 Year
  Sex: Female
  Weight: 90.72 kg

DRUGS (3)
  1. PLAVIX [Suspect]
     Indication: STENT PLACEMENT
     Route: 065
     Dates: start: 20100101
  2. ALL OTHER THERAPEUTIC PRODUCTS [Concomitant]
  3. ANTIBIOTICS [Concomitant]

REACTIONS (3)
  - COMA [None]
  - MYOCARDIAL INFARCTION [None]
  - HEART VALVE REPLACEMENT [None]
